FAERS Safety Report 13423108 (Version 4)
Quarter: 2017Q3

REPORT INFORMATION
  Report Type: Report from Study
  Country: US (occurrence: US)
  Receive Date: 20170410
  Receipt Date: 20170720
  Transmission Date: 20171127
  Serious: Yes (Hospitalization, Other)
  Sender: FDA-Public Use
  Company Number: US-BAYER-2017-059385

PATIENT
  Age: 70 Year
  Sex: Male

DRUGS (19)
  1. METFORMIN [Concomitant]
     Active Substance: METFORMIN HYDROCHLORIDE
     Indication: DIABETES MELLITUS
  2. VIGRAN [Concomitant]
     Active Substance: VITAMINS
     Indication: VITAMIN SUPPLEMENTATION
  3. GABAPENTIN. [Concomitant]
     Active Substance: GABAPENTIN
     Indication: DIABETIC NEUROPATHY
  4. FISH OIL [Concomitant]
     Active Substance: FISH OIL
     Indication: VITAMIN SUPPLEMENTATION
  5. DIGOXIN. [Concomitant]
     Active Substance: DIGOXIN
     Indication: CARDIAC FAILURE CONGESTIVE
  6. NIACIN. [Concomitant]
     Active Substance: NIACIN
     Indication: VITAMIN SUPPLEMENTATION
  7. WARFARIN POTASSIUM [Suspect]
     Active Substance: WARFARIN POTASSIUM
     Indication: ATRIAL FIBRILLATION
     Dosage: 5 MG MILLIGRAM(S), 5 TIMES A WEEK
     Route: 048
     Dates: start: 20170317
  8. LISINOPRIL. [Concomitant]
     Active Substance: LISINOPRIL
     Indication: HYPERTENSION
  9. PLACEBO (SHAM TREATMENT) (VGFTE-OD-1411) (AFLIBERCEPT) [Suspect]
     Active Substance: AFLIBERCEPT
     Indication: DIABETIC RETINOPATHY
     Dosage: MASKED, LEFT EYE (RECEIVED 3 DOSES PRIOR TO EVENT ONSET, MOST RECENT DOSE ON 13-MAR-2017)
     Route: 031
     Dates: start: 20161213
  10. ZAROXOLYN [Concomitant]
     Active Substance: METOLAZONE
     Indication: CARDIAC FAILURE CONGESTIVE
  11. FUROSEMIDE. [Concomitant]
     Active Substance: FUROSEMIDE
     Indication: HYPERTENSION
  12. CRESTOR [Concomitant]
     Active Substance: ROSUVASTATIN CALCIUM
     Indication: HYPERLIPIDAEMIA
  13. CARVEDILOL. [Concomitant]
     Active Substance: CARVEDILOL
     Indication: CORONARY ARTERY DISEASE
  14. NOVOLIN [INSULIN HUMAN INJECTION, ISOPHANE] [Concomitant]
     Indication: DIABETES MELLITUS
  15. COREG [Concomitant]
     Active Substance: CARVEDILOL
     Indication: PRODUCT USED FOR UNKNOWN INDICATION
  16. WARFARIN POTASSIUM [Suspect]
     Active Substance: WARFARIN POTASSIUM
     Indication: CARDIAC FAILURE CONGESTIVE
     Dosage: 5 MG, QD
     Route: 048
     Dates: start: 1994, end: 20170313
  17. WARFARIN POTASSIUM [Suspect]
     Active Substance: WARFARIN POTASSIUM
     Indication: CARDIAC FAILURE CONGESTIVE
     Dosage: 2.5 MG MILLIGRAM(S), TWICE A WEEK
     Route: 048
     Dates: start: 20170317
  18. BAYER ASPIRIN [Suspect]
     Active Substance: ASPIRIN
     Indication: HYPERTENSION
     Dosage: 81 MG, QD
     Route: 048
     Dates: start: 1994
  19. HUMULIN [INSULIN HUMAN INJECTION, ISOPHANE] [Concomitant]
     Indication: PRODUCT USED FOR UNKNOWN INDICATION

REACTIONS (2)
  - Gastrointestinal haemorrhage [Recovered/Resolved]
  - Acute kidney injury [Recovered/Resolved]

NARRATIVE: CASE EVENT DATE: 20170313
